FAERS Safety Report 8152776-8 (Version None)
Quarter: 2012Q1

REPORT INFORMATION
  Report Type: 
  Country: None (occurrence: None)
  Receive Date: 20120216
  Receipt Date: 20120216
  Transmission Date: 20120608
  Serious: Yes (Hospitalization)
  Sender: FDA-Public Use
  Company Number: None

PATIENT
  Sex: Female
  Weight: 47.3 kg

DRUGS (7)
  1. RAMIPRIL [Concomitant]
  2. ACYCLOVIR [Concomitant]
  3. METFORMIN HCL [Suspect]
     Indication: TYPE 2 DIABETES MELLITUS
     Dosage: 2000 MG DAILY ORAL
     Route: 048
     Dates: start: 19900101, end: 20120210
  4. ALLOPURINOL [Concomitant]
  5. PRAVASTATIN [Concomitant]
  6. TRADJENTA [Suspect]
     Indication: TYPE 2 DIABETES MELLITUS
     Dosage: 5 MG DAILY ORAL
     Route: 048
     Dates: start: 20111206, end: 20120206
  7. FENOFIBRATE [Concomitant]

REACTIONS (6)
  - NAUSEA [None]
  - HYPOGLYCAEMIA [None]
  - WEIGHT DECREASED [None]
  - FATIGUE [None]
  - RENAL FAILURE ACUTE [None]
  - VOMITING [None]
